FAERS Safety Report 18602028 (Version 1)
Quarter: 2020Q4

REPORT INFORMATION
  Report Type: Report from Study
  Country: CA (occurrence: CA)
  Receive Date: 20201210
  Receipt Date: 20201210
  Transmission Date: 20210114
  Serious: Yes (Death, Hospitalization)
  Sender: FDA-Public Use
  Company Number: PHHY2018CA149066

PATIENT
  Age: 55 Year
  Sex: Male

DRUGS (14)
  1. ERELZI (ETANERCEPT) [Suspect]
     Active Substance: ETANERCEPT
     Indication: ANKYLOSING SPONDYLITIS
     Dosage: 50 MG, QW
     Route: 058
     Dates: start: 20181016
  2. ERELZI (ETANERCEPT) [Suspect]
     Active Substance: ETANERCEPT
     Dosage: 50 MG, QW
     Route: 058
     Dates: start: 20181016
  3. ERELZI (ETANERCEPT) [Suspect]
     Active Substance: ETANERCEPT
     Dosage: 50 MG, QW
     Route: 058
     Dates: start: 201901
  4. ERELZI (ETANERCEPT) [Suspect]
     Active Substance: ETANERCEPT
     Dosage: 50 MG, QW
     Route: 058
     Dates: start: 20190827
  5. HUMIRA [Concomitant]
     Active Substance: ADALIMUMAB
     Indication: PRODUCT USED FOR UNKNOWN INDICATION
     Dosage: UNK
     Route: 065
     Dates: start: 2010, end: 2010
  6. ERELZI (ETANERCEPT) [Suspect]
     Active Substance: ETANERCEPT
     Dosage: 50 MG, QW
     Route: 058
     Dates: start: 20190903
  7. IBUPROFENE [Concomitant]
     Active Substance: IBUPROFEN
     Indication: PRODUCT USED FOR UNKNOWN INDICATION
     Dosage: UNK
     Route: 065
     Dates: start: 201612, end: 201704
  8. TYLENOL ARTHRITIS PAIN [Concomitant]
     Active Substance: ACETAMINOPHEN
     Indication: PRODUCT USED FOR UNKNOWN INDICATION
     Dosage: UNK
     Route: 065
  9. AZITHROMYCINE [Concomitant]
     Active Substance: AZITHROMYCIN
     Indication: PULMONARY FIBROSIS
     Dosage: 2 UNK, OTHER
     Route: 048
  10. ERELZI (ETANERCEPT) [Suspect]
     Active Substance: ETANERCEPT
     Dosage: 50 MG, QW
     Route: 058
     Dates: start: 20181106
  11. ERELZI (ETANERCEPT) [Suspect]
     Active Substance: ETANERCEPT
     Dosage: 50 MG, QW
     Route: 058
     Dates: start: 20191011
  12. ERELZI (ETANERCEPT) [Suspect]
     Active Substance: ETANERCEPT
     Dosage: 50 MG, QW
     Route: 058
     Dates: start: 20191024
  13. ERELZI (ETANERCEPT) [Suspect]
     Active Substance: ETANERCEPT
     Dosage: 50 MG, QW
     Route: 058
     Dates: start: 20190201
  14. ERELZI (ETANERCEPT) [Suspect]
     Active Substance: ETANERCEPT
     Dosage: 50 MG, QW
     Route: 058
     Dates: start: 20190813

REACTIONS (21)
  - Injection site bruising [Unknown]
  - Fatigue [Unknown]
  - Neck pain [Unknown]
  - Dysstasia [Unknown]
  - Wrong technique in device usage process [Unknown]
  - Pain [Unknown]
  - Back pain [Unknown]
  - Nasopharyngitis [Unknown]
  - Dyspnoea [Unknown]
  - Musculoskeletal stiffness [Unknown]
  - Sensitivity to weather change [Unknown]
  - Influenza [Unknown]
  - Arthralgia [Unknown]
  - Joint swelling [Unknown]
  - Drug ineffective [Unknown]
  - Death [Fatal]
  - Sputum discoloured [Unknown]
  - Dyspnoea exertional [Unknown]
  - Discomfort [Unknown]
  - Concomitant disease aggravated [Unknown]
  - C-reactive protein increased [Unknown]

NARRATIVE: CASE EVENT DATE: 2018
